FAERS Safety Report 18817220 (Version 1)
Quarter: 2021Q1

REPORT INFORMATION
  Report Type: Spontaneous
  Country: US (occurrence: US)
  Receive Date: 20210201
  Receipt Date: 20210201
  Transmission Date: 20210419
  Serious: Yes (Other)
  Sender: FDA-Public Use
  Company Number: US-B.I. PHARMACEUTICALS,INC./RIDGEFIELD-2021-BI-079019

PATIENT
  Age: 56 Year
  Sex: Male

DRUGS (6)
  1. PLAVIX [Concomitant]
     Active Substance: CLOPIDOGREL BISULFATE
     Indication: PRODUCT USED FOR UNKNOWN INDICATION
  2. ELIQUIS [Concomitant]
     Active Substance: APIXABAN
     Indication: PRODUCT USED FOR UNKNOWN INDICATION
  3. GLYXAMBI [Suspect]
     Active Substance: EMPAGLIFLOZIN\LINAGLIPTIN
     Dosage: 10MG/5 MG ONCE IN THE MORNING
     Dates: start: 20210104
  4. GLYXAMBI [Suspect]
     Active Substance: EMPAGLIFLOZIN\LINAGLIPTIN
     Indication: TYPE 2 DIABETES MELLITUS
     Dosage: 25MG/5MG ONCE IN THE MORNING
     Dates: start: 201604, end: 202010
  5. WARFARIN [Concomitant]
     Active Substance: WARFARIN
     Indication: PRODUCT USED FOR UNKNOWN INDICATION
  6. LISINOPRIL. [Concomitant]
     Active Substance: LISINOPRIL
     Indication: PRODUCT USED FOR UNKNOWN INDICATION
     Dosage: 5MG

REACTIONS (11)
  - Visual impairment [Not Recovered/Not Resolved]
  - Weight increased [Recovered/Resolved]
  - Hemiplegia [Recovered/Resolved]
  - Glycosylated haemoglobin decreased [Recovered/Resolved]
  - Nephrolithiasis [Not Recovered/Not Resolved]
  - Blood urine present [Not Recovered/Not Resolved]
  - Cerebrovascular accident [Recovered/Resolved]
  - Weight decreased [Recovered/Resolved]
  - Arthralgia [Not Recovered/Not Resolved]
  - Amnesia [Not Recovered/Not Resolved]
  - Glycosylated haemoglobin increased [Recovered/Resolved]

NARRATIVE: CASE EVENT DATE: 201604
